FAERS Safety Report 24540657 (Version 1)
Quarter: 2024Q4

REPORT INFORMATION
  Report Type: Report from Study
  Country: IT (occurrence: IT)
  Receive Date: 20241023
  Receipt Date: 20241023
  Transmission Date: 20250115
  Serious: Yes (Disabling)
  Sender: AMGEN
  Company Number: IT-AMGEN-ITANI2024205725

PATIENT
  Age: 81 Year
  Sex: Female

DRUGS (6)
  1. DENOSUMAB [Suspect]
     Active Substance: DENOSUMAB
     Indication: Metastases to bone
     Dosage: 120 MILLIGRAM, EVERY 28 DAYS
     Route: 058
     Dates: start: 20200506, end: 202205
  2. TRASTUZUMAB [Concomitant]
     Active Substance: TRASTUZUMAB
     Indication: Invasive ductal breast carcinoma
     Dosage: 6 MILLIGRAM/KILOGRAM (INITIAL LOADING DOSE 8 MG/KG INTRAVENOUSLY 1 SINGLE MAINTENANCE DOSE 6 MG/KG I
     Route: 040
     Dates: start: 2020
  3. LETROZOLE [Concomitant]
     Active Substance: LETROZOLE
     Indication: Invasive ductal breast carcinoma
     Dosage: 2.5 MILLIGRAM, QD
     Route: 048
  4. BRINZOLAMIDE [Concomitant]
     Active Substance: BRINZOLAMIDE
     Dosage: 1 DROP, Q12H, 1DROP / 2 EYE DROPS PER DAY
  5. CALCIUM CARBONATE [Concomitant]
     Active Substance: CALCIUM CARBONATE
     Dosage: UNK
  6. CHOLECALCIFEROL [Concomitant]
     Active Substance: CHOLECALCIFEROL
     Dosage: UNK

REACTIONS (2)
  - Pain [Recovering/Resolving]
  - Osteonecrosis of jaw [Recovering/Resolving]

NARRATIVE: CASE EVENT DATE: 20220401
